FAERS Safety Report 8167834-1 (Version None)
Quarter: 2012Q1

REPORT INFORMATION
  Report Type: 
  Country: None (occurrence: None)
  Receive Date: 20120227
  Receipt Date: 20120215
  Transmission Date: 20120608
  Serious: Yes (Other)
  Sender: FDA-Public Use
  Company Number: MX-ROCHE-1041098

PATIENT
  Sex: Female
  Weight: 113 kg

DRUGS (1)
  1. RITUXAN [Suspect]
     Indication: NON-HODGKIN'S LYMPHOMA
     Route: 042
     Dates: start: 20111001

REACTIONS (3)
  - COAGULOPATHY [None]
  - PORTAL VEIN PHLEBITIS [None]
  - PARAESTHESIA [None]
